FAERS Safety Report 4837229-4 (Version None)
Quarter: 2005Q4

REPORT INFORMATION
  Report Type: 
  Country: None (occurrence: None)
  Receive Date: 20051122
  Receipt Date: 20051107
  Transmission Date: 20060501
  Serious: Yes (Other)
  Sender: FDA-Public Use
  Company Number: A-US2005-10951

PATIENT
  Age: 21 Year
  Sex: Female

DRUGS (1)
  1. TRACLEER [Suspect]
     Indication: PULMONARY HYPERTENSION
     Dosage: ORAL
     Route: 048
     Dates: start: 20021213, end: 20051017

REACTIONS (3)
  - ABORTION INDUCED [None]
  - DRUG EXPOSURE DURING PREGNANCY [None]
  - PREGNANCY [None]
